FAERS Safety Report 9232171 (Version 1)
Quarter: 2013Q2

REPORT INFORMATION
  Report Type: Spontaneous
  Country: DK (occurrence: DK)
  Receive Date: 20130415
  Receipt Date: 20130415
  Transmission Date: 20140414
  Serious: Yes (Hospitalization)
  Sender: FDA-Public Use
  Company Number: DK-MYLANLABS-2013S1007262

PATIENT
  Age: 74 Year
  Sex: Male

DRUGS (3)
  1. TRAMADOL [Suspect]
     Indication: BACK PAIN
     Route: 065
  2. IBUPROFEN [Interacting]
     Indication: BACK PAIN
     Route: 065
  3. WARFARIN [Interacting]
     Indication: ATRIAL FIBRILLATION
     Route: 065

REACTIONS (3)
  - International normalised ratio increased [Recovered/Resolved]
  - Drug interaction [Recovered/Resolved]
  - Drug interaction [Recovered/Resolved]
